FAERS Safety Report 6166606-7 (Version None)
Quarter: 2009Q2

REPORT INFORMATION
  Report Type: 
  Country: None (occurrence: None)
  Receive Date: 20090424
  Receipt Date: 20080715
  Transmission Date: 20091009
  Serious: No
  Sender: FDA-Public Use
  Company Number: US-ASTRAZENECA-2008UW14127

PATIENT
  Age: 51 Year
  Sex: Male
  Weight: 100.7 kg

DRUGS (2)
  1. ZOMIG [Suspect]
     Indication: MIGRAINE
     Dosage: 2.5 MG
     Route: 048
  2. ZOMIG [Suspect]
     Indication: TENSION
     Dosage: 2.5 MG
     Route: 048

REACTIONS (9)
  - ANGIOEDEMA [None]
  - LIP SWELLING [None]
  - OEDEMA PERIPHERAL [None]
  - PAIN IN EXTREMITY [None]
  - PARAESTHESIA [None]
  - PARAESTHESIA ORAL [None]
  - PRURITUS [None]
  - RASH [None]
  - URTICARIA [None]
